FAERS Safety Report 21616298 (Version 3)
Quarter: 2022Q4

REPORT INFORMATION
  Report Type: Spontaneous
  Country: US (occurrence: US)
  Receive Date: 20221118
  Receipt Date: 20221207
  Transmission Date: 20230113
  Serious: Yes (Other)
  Sender: FDA-Public Use
  Company Number: US-JNJFOC-20221122535

PATIENT
  Age: 55 Year
  Sex: Female
  Weight: 49.940 kg

DRUGS (4)
  1. TOPAMAX [Suspect]
     Active Substance: TOPIRAMATE
     Indication: Focal dyscognitive seizures
     Route: 048
     Dates: start: 2001
  2. TOPAMAX [Suspect]
     Active Substance: TOPIRAMATE
     Route: 048
     Dates: start: 2021
  3. TOPAMAX [Suspect]
     Active Substance: TOPIRAMATE
     Dosage: THREE 200 MG TABLETS IN THE MORNING, AND ALSO TAKES THREE 200 MG TABLETS IN THE EVENING DAILY
     Route: 048
  4. TOPIRAMATE [Suspect]
     Active Substance: TOPIRAMATE
     Indication: Focal dyscognitive seizures
     Route: 048

REACTIONS (7)
  - Seizure [Unknown]
  - Stress [Unknown]
  - Arthritis [Unknown]
  - Road traffic accident [Unknown]
  - Weight decreased [Unknown]
  - Drug ineffective [Unknown]
  - Overdose [Unknown]

NARRATIVE: CASE EVENT DATE: 20210101
